FAERS Safety Report 14931481 (Version 2)
Quarter: 2018Q2

REPORT INFORMATION
  Report Type: Spontaneous
  Country: AU (occurrence: AU)
  Receive Date: 20180524
  Receipt Date: 20180601
  Transmission Date: 20180711
  Serious: Yes (Other)
  Sender: FDA-Public Use
  Company Number: AU-ROCHE-2128446

PATIENT
  Sex: Female

DRUGS (1)
  1. AVASTIN [Suspect]
     Active Substance: BEVACIZUMAB
     Indication: OVARIAN CANCER
     Route: 065

REACTIONS (5)
  - Renal failure [Unknown]
  - Thrombotic microangiopathy [Unknown]
  - Cerebral haemorrhage [Unknown]
  - Nephrotic syndrome [Unknown]
  - Platelet count decreased [Unknown]
